FAERS Safety Report 10705006 (Version 2)
Quarter: 2015Q1

REPORT INFORMATION
  Report Type: Spontaneous
  Country: US (occurrence: US)
  Receive Date: 20150112
  Receipt Date: 20150116
  Transmission Date: 20150721
  Serious: Yes (Death, Other)
  Sender: FDA-Public Use
  Company Number: US-PFIZER INC-2015006890

PATIENT
  Age: 20 Year
  Sex: Male

DRUGS (3)
  1. TRAMADOL [Suspect]
     Active Substance: TRAMADOL
     Dosage: UNK
  2. IBUPROFEN. [Suspect]
     Active Substance: IBUPROFEN
     Dosage: UNK
  3. ACETAMINOPHEN/DEXTROMETHORPHAN HYDROBROMIDE/DOXYLAMINE SUCCINATE [Suspect]
     Active Substance: ACETAMINOPHEN\DEXTROMETHORPHAN HYDROBROMIDE\DOXYLAMINE SUCCINATE
     Dosage: UNK

REACTIONS (7)
  - Foreign body aspiration [None]
  - Cardiac arrest [Fatal]
  - Exposure via ingestion [None]
  - Respiratory arrest [Fatal]
  - Poisoning [None]
  - Death [Fatal]
  - Blood ethanol increased [None]

NARRATIVE: CASE EVENT DATE: 2013
